FAERS Safety Report 8325566 (Version 7)
Quarter: 2016Q1

REPORT INFORMATION
  Report Type: Spontaneous
  Country: US (occurrence: US)
  Receive Date: 20120106
  Receipt Date: 20160308
  Transmission Date: 20160526
  Serious: Yes (Hospitalization, Other)
  Sender: FDA-Public Use
  Company Number: US-BAYER-2012-001347

PATIENT
  Age: 27 Year
  Sex: Female
  Weight: 72.56 kg

DRUGS (1)
  1. MIRENA [Suspect]
     Active Substance: LEVONORGESTREL
     Indication: CONTRACEPTION
     Dosage: 20 MCG/24HR, CONT
     Route: 015
     Dates: start: 20101119, end: 20110623

REACTIONS (17)
  - Amenorrhoea [Recovered/Resolved]
  - Uterine pain [None]
  - Complication associated with device [None]
  - Menstrual disorder [None]
  - Dysuria [None]
  - Pelvic pain [None]
  - Uterine perforation [None]
  - Procedural haemorrhage [Recovered/Resolved]
  - Menorrhagia [Recovered/Resolved]
  - Device issue [None]
  - Fear [None]
  - Procedural pain [Recovered/Resolved]
  - Device difficult to use [Recovered/Resolved]
  - Ovarian cyst [None]
  - Device expulsion [None]
  - Injury [None]
  - Emotional distress [None]

NARRATIVE: CASE EVENT DATE: 201011
